FAERS Safety Report 16882253 (Version 1)
Quarter: 2019Q4

REPORT INFORMATION
  Report Type: Spontaneous
  Country: US (occurrence: US)
  Receive Date: 20191003
  Receipt Date: 20191003
  Transmission Date: 20200122
  Serious: No
  Sender: FDA-Public Use
  Company Number: None

PATIENT
  Age: 54 Year
  Sex: Female

DRUGS (1)
  1. CHOLESTYRAMINE POWDER PACKETS [Suspect]
     Active Substance: CHOLESTYRAMINE
     Route: 048

REACTIONS (3)
  - Product solubility abnormal [None]
  - Choking [None]
  - Product physical consistency issue [None]

NARRATIVE: CASE EVENT DATE: 20191003
